FAERS Safety Report 8059537-9 (Version None)
Quarter: 2012Q1

REPORT INFORMATION
  Report Type: 
  Country: None (occurrence: None)
  Receive Date: 20120120
  Receipt Date: 20120103
  Transmission Date: 20120608
  Serious: Yes (Other)
  Sender: FDA-Public Use
  Company Number: FR-ROCHE-1031727

PATIENT
  Sex: Female

DRUGS (2)
  1. XOLAIR [Suspect]
     Indication: ASTHMA
     Dates: start: 20080901
  2. FLUTICASONE PROPIONATE/SALMETEROL [Concomitant]
     Dates: start: 20070101

REACTIONS (2)
  - PRE-ECLAMPSIA [None]
  - MATERNAL EXPOSURE DURING PREGNANCY [None]
